FAERS Safety Report 7562703-X (Version None)
Quarter: 2011Q2

REPORT INFORMATION
  Report Type: 
  Country: None (occurrence: None)
  Receive Date: 20110622
  Receipt Date: 20110616
  Transmission Date: 20111010
  Serious: Yes (Hospitalization)
  Sender: FDA-Public Use
  Company Number: DE-PFIZER INC-2011132281

PATIENT
  Age: 63 Year
  Sex: Female
  Weight: 70 kg

DRUGS (3)
  1. TEMSIROLIMUS [Suspect]
     Indication: METASTATIC RENAL CELL CARCINOMA
     Dosage: 25 MG, WEEKLY
     Dates: start: 20100310, end: 20110201
  2. METOCLOPRAMIDE [Concomitant]
     Indication: PREMEDICATION
     Dosage: 10 MG, WEEKLY
     Dates: start: 20100310
  3. FENISTIL [Concomitant]
     Indication: PREMEDICATION
     Dosage: 4 MG, WEEKLY
     Dates: start: 20100310

REACTIONS (1)
  - INCISIONAL HERNIA [None]
